FAERS Safety Report 7578093-2 (Version None)
Quarter: 2011Q2

REPORT INFORMATION
  Report Type: 
  Country: None (occurrence: None)
  Receive Date: 20110628
  Receipt Date: 20110616
  Transmission Date: 20111010
  Serious: Yes (Hospitalization, Other)
  Sender: FDA-Public Use
  Company Number: BR-US-EMD SERONO, INC.-7066113

PATIENT
  Sex: Female

DRUGS (3)
  1. REBIF [Suspect]
     Dates: start: 20110528, end: 20110602
  2. REBIF [Suspect]
     Dates: start: 20110602
  3. REBIF [Suspect]
     Indication: RELAPSING-REMITTING MULTIPLE SCLEROSIS
     Dates: start: 20100510

REACTIONS (5)
  - ASPARTATE AMINOTRANSFERASE INCREASED [None]
  - GAMMA-GLUTAMYLTRANSFERASE [None]
  - PNEUMONIA [None]
  - ALANINE AMINOTRANSFERASE INCREASED [None]
  - INJECTION SITE ERYTHEMA [None]
